FAERS Safety Report 10841360 (Version 5)
Quarter: 2015Q2

REPORT INFORMATION
  Report Type: Report from Study
  Country: US (occurrence: US)
  Receive Date: 20150220
  Receipt Date: 20150525
  Transmission Date: 20150821
  Serious: Yes (Hospitalization, Other)
  Sender: FDA-Public Use
  Company Number: US-ROCHE-1538513

PATIENT
  Sex: Male

DRUGS (12)
  1. VITAMIN B12 [Concomitant]
     Active Substance: CYANOCOBALAMIN
  2. PRAVASTATIN [Concomitant]
     Active Substance: PRAVASTATIN\PRAVASTATIN SODIUM
  3. VITAMIN D3 [Concomitant]
     Active Substance: CHOLECALCIFEROL
  4. ERIVEDGE [Suspect]
     Active Substance: VISMODEGIB
     Indication: BASAL CELL CARCINOMA
     Route: 048
     Dates: start: 20130622
  5. DIGOXIN. [Concomitant]
     Active Substance: DIGOXIN
  6. LISINOPRIL. [Concomitant]
     Active Substance: LISINOPRIL
  7. TEMAZEPAM. [Concomitant]
     Active Substance: TEMAZEPAM
  8. OMEPRAZOLE. [Concomitant]
     Active Substance: OMEPRAZOLE
  9. AMLODIPINE [Concomitant]
     Active Substance: AMLODIPINE BESYLATE
  10. ZOLPIDEM TARTRATE. [Concomitant]
     Active Substance: ZOLPIDEM TARTRATE
  11. TAMSULOSIN HYDROCHLORIDE. [Concomitant]
     Active Substance: TAMSULOSIN HYDROCHLORIDE
  12. FAMVIR (UNITED STATES) [Concomitant]

REACTIONS (11)
  - Rash [Unknown]
  - Alopecia [Recovering/Resolving]
  - Gastroenteritis viral [Unknown]
  - Asthenia [Unknown]
  - Weight decreased [Recovering/Resolving]
  - Productive cough [Unknown]
  - Ageusia [Recovering/Resolving]
  - Muscle spasms [Unknown]
  - Hypertension [Unknown]
  - Infectious mononucleosis [Not Recovered/Not Resolved]
  - Hair growth abnormal [Unknown]
